FAERS Safety Report 22100441 (Version 2)
Quarter: 2023Q2

REPORT INFORMATION
  Report Type: Report from Study
  Country: US (occurrence: US)
  Receive Date: 20230316
  Receipt Date: 20230428
  Transmission Date: 20230722
  Serious: Yes (Death, Hospitalization, Other)
  Sender: FDA-Public Use
  Company Number: US-ACADIA PHARMACEUTICALS INC.-ACA-2023-PIM-000924

PATIENT
  Age: 77 Year
  Sex: Male

DRUGS (20)
  1. NUPLAZID [Suspect]
     Active Substance: PIMAVANSERIN TARTRATE
     Indication: Parkinson^s disease
     Dosage: 34 MILLIGRAM, QD
     Route: 048
     Dates: start: 202212, end: 20230206
  2. NOURIANZ [Concomitant]
     Active Substance: ISTRADEFYLLINE
  3. DEPAKOTE [Concomitant]
     Active Substance: DIVALPROEX SODIUM
  4. GABAPENTIN [Concomitant]
     Active Substance: GABAPENTIN
  5. CLONAZEPAM [Concomitant]
     Active Substance: CLONAZEPAM
  6. FLOMAX [Concomitant]
     Active Substance: TAMSULOSIN HYDROCHLORIDE
  7. ATORVASTATIN [Concomitant]
     Active Substance: ATORVASTATIN
  8. TRAMADOL [Concomitant]
     Active Substance: TRAMADOL
  9. QUETIAPINE [Concomitant]
     Active Substance: QUETIAPINE
  10. TRADJENTA [Concomitant]
     Active Substance: LINAGLIPTIN
  11. PROAIR HFA [Concomitant]
     Active Substance: ALBUTEROL SULFATE
  12. METFORMIN [Concomitant]
     Active Substance: METFORMIN HYDROCHLORIDE
  13. SYNTHROID [Concomitant]
     Active Substance: LEVOTHYROXINE SODIUM
  14. VITAMIN C [Concomitant]
     Active Substance: ASCORBIC ACID
  15. PRAMIPEXOLE [Concomitant]
     Active Substance: PRAMIPEXOLE
  16. SINEMET [Concomitant]
     Active Substance: CARBIDOPA\LEVODOPA
  17. ENTACAPONE [Concomitant]
     Active Substance: ENTACAPONE
  18. LASIX [Concomitant]
     Active Substance: FUROSEMIDE
  19. DICLOFENAC [Concomitant]
     Active Substance: DICLOFENAC
     Dosage: 1 PERCENT
  20. PROAIR HFA [Concomitant]
     Active Substance: ALBUTEROL SULFATE

REACTIONS (3)
  - Pneumonia aspiration [Recovered/Resolved]
  - Respiratory failure [Recovered/Resolved]
  - Parkinson^s disease [Recovered/Resolved]

NARRATIVE: CASE EVENT DATE: 20230207
